FAERS Safety Report 15812517 (Version 1)
Quarter: 2019Q1

REPORT INFORMATION
  Report Type: Spontaneous
  Country: US (occurrence: US)
  Receive Date: 20190111
  Receipt Date: 20190111
  Transmission Date: 20190417
  Serious: No
  Sender: FDA-Public Use
  Company Number: US-ALLERGAN-1845682US

PATIENT
  Age: 53 Year
  Sex: Female
  Weight: 63.49 kg

DRUGS (2)
  1. PLAQUENIL [Concomitant]
     Active Substance: HYDROXYCHLOROQUINE SULFATE
     Indication: SYSTEMIC LUPUS ERYTHEMATOSUS
     Dosage: UNK
     Route: 065
  2. DALVANCE [Suspect]
     Active Substance: DALBAVANCIN
     Indication: SKIN INFECTION
     Dosage: 1500 MG, SINGLE
     Route: 042
     Dates: start: 20180907, end: 20180907

REACTIONS (1)
  - Urticaria [Not Recovered/Not Resolved]

NARRATIVE: CASE EVENT DATE: 20180918
